FAERS Safety Report 13724599 (Version 1)
Quarter: 2017Q3

REPORT INFORMATION
  Report Type: Spontaneous
  Country: FR (occurrence: FR)
  Receive Date: 20170706
  Receipt Date: 20170706
  Transmission Date: 20171127
  Serious: Yes (Hospitalization, Disabling)
  Sender: FDA-Public Use
  Company Number: FR-EISAI MEDICAL RESEARCH-EC-2017-028541

PATIENT
  Age: 68 Year
  Sex: Female
  Weight: 40 kg

DRUGS (12)
  1. KEPPRA [Concomitant]
     Active Substance: LEVETIRACETAM
     Indication: EPILEPSY
     Dosage: 25 ML
     Route: 065
     Dates: end: 201704
  2. FYCOMPA [Suspect]
     Active Substance: PERAMPANEL
     Route: 048
     Dates: start: 201704, end: 20170413
  3. URBANYL [Concomitant]
     Active Substance: CLOBAZAM
     Indication: EPILEPSY
     Dosage: 20 MG
     Route: 048
  4. SPECIAFOLDINE [Concomitant]
     Active Substance: FOLIC ACID
     Indication: PRODUCT USED FOR UNKNOWN INDICATION
     Dosage: UNKNOWN
     Route: 065
  5. SEROPRAM [Concomitant]
     Active Substance: CITALOPRAM HYDROBROMIDE
     Indication: PRODUCT USED FOR UNKNOWN INDICATION
     Route: 048
     Dates: start: 201704
  6. FYCOMPA [Suspect]
     Active Substance: PERAMPANEL
     Route: 048
     Dates: start: 20170407, end: 201704
  7. TEGRETOL [Concomitant]
     Active Substance: CARBAMAZEPINE
     Dosage: 100 MG IN THE MORNING AND 200 MG IN THE EVENING
     Route: 048
     Dates: start: 201704
  8. SEROPLEX [Concomitant]
     Active Substance: ESCITALOPRAM OXALATE
     Indication: PRODUCT USED FOR UNKNOWN INDICATION
     Dosage: 10
     Route: 065
     Dates: end: 201704
  9. FYCOMPA [Suspect]
     Active Substance: PERAMPANEL
     Indication: EPILEPSY
     Route: 048
     Dates: start: 20170310, end: 20170406
  10. KEPPRA [Concomitant]
     Active Substance: LEVETIRACETAM
     Dosage: 1 GRAM IN THE MORNING AND 1.5 GRAM IN THE EVENING
     Route: 048
     Dates: start: 201704
  11. TEGRETOL [Concomitant]
     Active Substance: CARBAMAZEPINE
     Indication: EPILEPSY
     Dosage: 15 ML
     Route: 048
     Dates: end: 20170309
  12. TEGRETOL [Concomitant]
     Active Substance: CARBAMAZEPINE
     Dosage: UNKNOWN
     Route: 048
     Dates: start: 20170310, end: 20170407

REACTIONS (7)
  - Hallucination [Recovered/Resolved]
  - Anxiety [Recovered/Resolved]
  - Petit mal epilepsy [Recovered/Resolved]
  - Somnolence [Recovered/Resolved]
  - Fall [Recovered/Resolved]
  - Balance disorder [Recovered/Resolved]
  - Affective disorder [Recovered/Resolved]

NARRATIVE: CASE EVENT DATE: 20170312
